FAERS Safety Report 10584397 (Version 1)
Quarter: 2014Q4

REPORT INFORMATION
  Report Type: Spontaneous
  Country: US (occurrence: None)
  Receive Date: 20141113
  Receipt Date: 20141113
  Transmission Date: 20150529
  Serious: Yes (Other)
  Sender: FDA-Public Use
  Company Number: None

PATIENT
  Age: 41 Year
  Sex: Female
  Weight: 64.86 kg

DRUGS (1)
  1. XELODA [Suspect]
     Active Substance: CAPECITABINE
     Indication: BREAST CANCER FEMALE
     Dosage: 3 TAB BID X 14 D
     Route: 048
     Dates: start: 20141023, end: 20141105

REACTIONS (5)
  - Diarrhoea [None]
  - Onychalgia [None]
  - Nail bed tenderness [None]
  - Nail bed bleeding [None]
  - Fatigue [None]

NARRATIVE: CASE EVENT DATE: 20141025
